FAERS Safety Report 20439359 (Version 1)
Quarter: 2022Q1

REPORT INFORMATION
  Report Type: Spontaneous
  Country: US (occurrence: US)
  Receive Date: 20220207
  Receipt Date: 20220207
  Transmission Date: 20220423
  Serious: Yes (Other)
  Sender: FDA-Public Use
  Company Number: US-ABBVIE-22K-163-4266496-00

PATIENT
  Sex: Female

DRUGS (1)
  1. SYNTHROID [Suspect]
     Active Substance: LEVOTHYROXINE SODIUM
     Indication: Basedow^s disease
     Route: 048
     Dates: start: 1982

REACTIONS (8)
  - Neoplasm malignant [Unknown]
  - Post-traumatic stress disorder [Unknown]
  - Memory impairment [Unknown]
  - Feeling jittery [Unknown]
  - Depression [Unknown]
  - Thyroid function test abnormal [Unknown]
  - Nervousness [Unknown]
  - Unevaluable event [Unknown]
